FAERS Safety Report 4636245-5 (Version None)
Quarter: 2005Q2

REPORT INFORMATION
  Report Type: 
  Country: None (occurrence: None)
  Receive Date: 20050415
  Receipt Date: 20030919
  Transmission Date: 20051028
  Serious: Yes (Life-Threatening, Other)
  Sender: FDA-Public Use
  Company Number: US-BRISTOL-MYERS SQUIBB COMPANY-12388047

PATIENT
  Age: 52 Year
  Sex: Female
  Weight: 76 kg

DRUGS (8)
  1. CARBOPLATIN [Suspect]
     Indication: OVARIAN CANCER
     Dosage: 1ST INFUSION-28AUG03  ADD'L LOT# 3E75214,(31DEC05), 3A61788+3G72927(31OCT05), 3B73720,(31MAR06)
     Route: 042
     Dates: start: 20030918, end: 20030918
  2. TAXOL [Concomitant]
     Indication: OVARIAN CANCER
     Dosage: 1ST INFUSION - 28AUG03
     Route: 042
     Dates: start: 20030918, end: 20030918
  3. BENADRYL [Concomitant]
     Indication: PREMEDICATION
     Route: 042
  4. ZANTAC [Concomitant]
     Indication: PREMEDICATION
     Route: 042
  5. DECADRON [Concomitant]
     Indication: PREMEDICATION
     Route: 042
  6. KYTRIL [Concomitant]
     Indication: PREMEDICATION
     Route: 042
  7. PROCRIT [Concomitant]
  8. HEPARIN [Concomitant]
     Dosage: 100 UNITS @ END OF EA. TREATMENT

REACTIONS (1)
  - HYPERSENSITIVITY [None]
